FAERS Safety Report 7436694-6 (Version None)
Quarter: 2011Q2

REPORT INFORMATION
  Report Type: 
  Country: None (occurrence: None)
  Receive Date: 20110415
  Receipt Date: 20110329
  Transmission Date: 20111010
  Serious: Yes (Hospitalization, Disabling, Other)
  Sender: FDA-Public Use
  Company Number: METO20110475

PATIENT
  Age: 64 Year
  Sex: Female

DRUGS (21)
  1. METOCLOPRAMIDE HYDROCHLORIDE [Suspect]
     Indication: IMPAIRED GASTRIC EMPTYING
     Dosage: 40 MG, AC AND HS, ORAL
     Route: 048
     Dates: start: 20080411, end: 20101126
  2. LEXAPRO [Concomitant]
  3. NEOSPORIN(NEOMYCIN SULFATE, POLYMYXIN B SULFATE, BACITRACIN) [Concomitant]
  4. CLONIDINE [Concomitant]
  5. ALDACTONE [Concomitant]
  6. AFRIN [Concomitant]
  7. ZOCOR [Concomitant]
  8. ATIVAN [Concomitant]
  9. ^KLONAPIN^(CLONAZEPAM) [Concomitant]
  10. ASPIRIN [Concomitant]
  11. VERAPAMIL [Concomitant]
  12. LOVASTATIN [Concomitant]
  13. OMEPRAZOLE [Concomitant]
  14. HYDROXIZINE(HYDROXYZINE HYDROCHLORIDE) [Concomitant]
  15. ALBUTEROL [Concomitant]
  16. CATAPRES [Concomitant]
  17. AMBIEN CR [Concomitant]
  18. PROZAC [Concomitant]
  19. CARAFATE [Concomitant]
  20. METANX(PYRIDOXINE HYDROCHLORIDE, CALCIUM MEFOLINATE, VITAMIN B12 NOS) [Concomitant]
  21. LISINOPRIL [Concomitant]

REACTIONS (42)
  - OSTEOPENIA [None]
  - HAEMORRHOIDS [None]
  - ANAEMIA [None]
  - SOMNOLENCE [None]
  - PAIN [None]
  - ABDOMINAL PAIN LOWER [None]
  - ATAXIA [None]
  - GRIMACING [None]
  - TARDIVE DYSKINESIA [None]
  - ARTHRALGIA [None]
  - TOXICITY TO VARIOUS AGENTS [None]
  - DROOLING [None]
  - HERPES ZOSTER [None]
  - BRONCHITIS [None]
  - WHITE BLOOD CELL COUNT INCREASED [None]
  - SLEEP DISORDER [None]
  - HAEMORRHAGE [None]
  - DYSKINESIA [None]
  - WEIGHT DECREASED [None]
  - ANXIETY [None]
  - TRISMUS [None]
  - HYPOAESTHESIA FACIAL [None]
  - DIZZINESS [None]
  - BALANCE DISORDER [None]
  - DYSPHAGIA [None]
  - BACK PAIN [None]
  - TYPE 2 DIABETES MELLITUS [None]
  - HAEMATURIA [None]
  - GLYCOSYLATED HAEMOGLOBIN INCREASED [None]
  - DYSARTHRIA [None]
  - CEREBROVASCULAR ACCIDENT [None]
  - STRESS [None]
  - BRADYCARDIA [None]
  - LOBAR PNEUMONIA [None]
  - HYPOPHAGIA [None]
  - EPISTAXIS [None]
  - CONJUNCTIVITIS [None]
  - LOSS OF CONSCIOUSNESS [None]
  - MUSCLE SPASMS [None]
  - FALL [None]
  - DRY MOUTH [None]
  - FLAT AFFECT [None]
